FAERS Safety Report 4851209-4 (Version None)
Quarter: 2005Q4

REPORT INFORMATION
  Report Type: 
  Country: None (occurrence: None)
  Receive Date: 20051208
  Receipt Date: 20051129
  Transmission Date: 20060501
  Serious: Yes (Other)
  Sender: FDA-Public Use
  Company Number: S05-USA-03951-01

PATIENT
  Age: 62 Year
  Sex: Male
  Weight: 100.6985 kg

DRUGS (2)
  1. LEXAPRO [Suspect]
     Indication: ANXIETY
     Dosage: 10 MG QD PO
     Route: 048
     Dates: start: 20040101, end: 20050727
  2. LEVOXYL [Concomitant]

REACTIONS (10)
  - DYSARTHRIA [None]
  - FEELING ABNORMAL [None]
  - GAIT DISTURBANCE [None]
  - HEAT STROKE [None]
  - IMPAIRED WORK ABILITY [None]
  - JUDGEMENT IMPAIRED [None]
  - MALAISE [None]
  - SOMNOLENCE [None]
  - VERTIGO [None]
  - WEIGHT INCREASED [None]
